FAERS Safety Report 14184878 (Version 7)
Quarter: 2019Q1

REPORT INFORMATION
  Report Type: Spontaneous
  Country: US (occurrence: US)
  Receive Date: 20171113
  Receipt Date: 20190107
  Transmission Date: 20190417
  Serious: Yes (Hospitalization)
  Sender: FDA-Public Use
  Company Number: US-ACTELION-A-US2017-162151

PATIENT
  Age: 51 Year
  Sex: Female
  Weight: 85.26 kg

DRUGS (3)
  1. COUMADIN [Concomitant]
     Active Substance: WARFARIN SODIUM
  2. ORENITRAM [Suspect]
     Active Substance: TREPROSTINIL
     Indication: PRODUCT USED FOR UNKNOWN INDICATION
     Dosage: UNK
     Route: 065
  3. OPSUMIT [Suspect]
     Active Substance: MACITENTAN
     Indication: PULMONARY ARTERIAL HYPERTENSION
     Dosage: 10 MG, QD
     Route: 048
     Dates: start: 20140719

REACTIONS (7)
  - Respiratory failure [Unknown]
  - Dyspnoea [Unknown]
  - Pain in jaw [Unknown]
  - Respiratory distress [Recovering/Resolving]
  - Asthma [Unknown]
  - Feeding disorder [Unknown]
  - Nausea [Unknown]
